FAERS Safety Report 13571812 (Version 1)
Quarter: 2017Q2

REPORT INFORMATION
  Report Type: Spontaneous
  Country: US (occurrence: US)
  Receive Date: 20170522
  Receipt Date: 20170522
  Transmission Date: 20170830
  Serious: Yes (Hospitalization)
  Sender: FDA-Public Use
  Company Number: None

PATIENT
  Age: 68 Year
  Sex: Male
  Weight: 101.5 kg

DRUGS (1)
  1. METFORMIN [Suspect]
     Active Substance: METFORMIN HYDROCHLORIDE
     Indication: DIABETES MELLITUS
     Route: 048
     Dates: start: 20150512, end: 20150622

REACTIONS (5)
  - Dehydration [None]
  - Somnolence [None]
  - Diarrhoea [None]
  - Blood glucose increased [None]
  - Orthostatic hypotension [None]

NARRATIVE: CASE EVENT DATE: 20150622
